FAERS Safety Report 10681838 (Version 1)
Quarter: 2014Q4

REPORT INFORMATION
  Report Type: Spontaneous
  Country: US (occurrence: None)
  Receive Date: 20141229
  Receipt Date: 20141229
  Transmission Date: 20150529
  Serious: Yes (Disabling)
  Sender: FDA-Public Use
  Company Number: None

PATIENT
  Age: 3 Year
  Sex: Female

DRUGS (1)
  1. ANDROGEL [Suspect]
     Active Substance: TESTOSTERONE
     Indication: DRUG THERAPY
     Dates: start: 20030101, end: 20030901

REACTIONS (3)
  - Unevaluable event [None]
  - Accidental exposure to product by child [None]
  - Surgery [None]

NARRATIVE: CASE EVENT DATE: 20030201
